FAERS Safety Report 15994487 (Version 1)
Quarter: 2019Q1

REPORT INFORMATION
  Report Type: Spontaneous
  Country: US (occurrence: US)
  Receive Date: 20190222
  Receipt Date: 20190222
  Transmission Date: 20190418
  Serious: No
  Sender: FDA-Public Use
  Company Number: US-INSYS THERAPEUTICS, INC-INS201810-000363

PATIENT
  Sex: Female

DRUGS (5)
  1. SUBSYS [Suspect]
     Active Substance: FENTANYL
     Indication: COMPLEX REGIONAL PAIN SYNDROME
     Route: 060
     Dates: start: 2013, end: 201712
  2. OXYCODONE [Concomitant]
     Active Substance: OXYCODONE
     Indication: PAIN
     Dosage: DECREASED FROM 3 TABLETS DAILY TO 1.5 TABLETS IN JAN/2018
  3. CLONIDINE. [Concomitant]
     Active Substance: CLONIDINE
     Indication: WITHDRAWAL SYNDROME
  4. MS CONTIN LA [Concomitant]
     Indication: PAIN
  5. SUBSYS [Suspect]
     Active Substance: FENTANYL
     Indication: MIGRAINE

REACTIONS (5)
  - Hyperventilation [Recovered/Resolved]
  - Withdrawal syndrome [Recovered/Resolved]
  - Palpitations [Recovered/Resolved]
  - Panic attack [Recovered/Resolved]
  - Feeling hot [Recovered/Resolved]
